FAERS Safety Report 9343883 (Version 1)
Quarter: 2013Q2

REPORT INFORMATION
  Report Type: Report from Study
  Country: JP (occurrence: JP)
  Receive Date: 20130612
  Receipt Date: 20130612
  Transmission Date: 20140414
  Serious: Yes (Other)
  Sender: FDA-Public Use
  Company Number: JP-ROCHE-1235486

PATIENT
  Age: 49 Year
  Sex: Female
  Weight: 30 kg

DRUGS (33)
  1. AMINOPHYLLINE [Concomitant]
     Route: 065
     Dates: start: 20130128
  2. AMINOPHYLLINE [Concomitant]
     Route: 065
     Dates: start: 20130207
  3. MINOCYCLINE HYDROCHLORIDE [Concomitant]
     Route: 065
     Dates: start: 20130108
  4. MINOCYCLINE HYDROCHLORIDE [Concomitant]
     Route: 065
     Dates: start: 20130204
  5. AMIKACIN SULFATE [Concomitant]
     Route: 065
     Dates: start: 20130312, end: 20130322
  6. PREDNISOLONE [Concomitant]
     Route: 065
     Dates: start: 20121224
  7. PREDNISOLONE [Concomitant]
     Route: 065
     Dates: end: 20120210
  8. SOL-MELCORT [Concomitant]
     Route: 065
     Dates: start: 20130201, end: 20130204
  9. GASMOTIN [Concomitant]
     Route: 065
     Dates: start: 20090512
  10. TAKEPRON [Concomitant]
     Route: 065
     Dates: start: 20121210
  11. BISOLVON [Concomitant]
     Route: 065
     Dates: start: 20121125
  12. BISOLVON [Concomitant]
     Route: 065
     Dates: start: 20121213
  13. BISOLVON [Concomitant]
     Route: 065
     Dates: start: 20121216
  14. CARBOCISTEINE [Concomitant]
     Route: 065
     Dates: start: 20121205
  15. ERYTHROMYCIN ETHYLSUCCINATE [Concomitant]
     Route: 065
     Dates: start: 20121220
  16. MEROPEN [Concomitant]
     Route: 065
     Dates: start: 20121228
  17. MEROPEN [Concomitant]
     Route: 065
     Dates: end: 20130117
  18. VANCOMYCIN [Concomitant]
     Route: 065
     Dates: start: 20121229, end: 20130107
  19. VANCOMYCIN [Concomitant]
     Route: 065
     Dates: start: 20130127
  20. VANCOMYCIN [Concomitant]
     Route: 065
     Dates: start: 20130128, end: 20130130
  21. SAXIZON [Concomitant]
     Route: 065
     Dates: start: 20121117
  22. SAXIZON [Concomitant]
     Route: 065
     Dates: end: 20121220
  23. SAXIZON [Concomitant]
     Route: 065
     Dates: start: 20130128
  24. SAXIZON [Concomitant]
     Route: 065
     Dates: start: 20130201, end: 20130202
  25. MODACIN [Concomitant]
     Route: 065
     Dates: start: 20121220, end: 20121225
  26. MODACIN [Concomitant]
     Route: 065
     Dates: start: 20130218
  27. MODACIN [Concomitant]
     Route: 065
     Dates: start: 20130219, end: 20130226
  28. OMALIZUMAB [Suspect]
     Indication: ASTHMA
     Route: 058
     Dates: start: 20121205
  29. BUDESONIDE [Concomitant]
     Route: 065
     Dates: start: 20121205
  30. TULOBUTEROL [Concomitant]
     Route: 065
     Dates: start: 20121205
  31. SALBUTAMOL SULFATE [Concomitant]
     Route: 065
     Dates: start: 20121205
  32. MONTELUKAST SODIUM [Concomitant]
     Route: 065
     Dates: start: 20121205
  33. THEOPHYLLINE [Concomitant]
     Route: 065
     Dates: start: 20121205

REACTIONS (2)
  - Stenotrophomonas infection [Unknown]
  - Pneumonia [Recovered/Resolved]
